FAERS Safety Report 25364766 (Version 1)
Quarter: 2025Q2

REPORT INFORMATION
  Report Type: Report from Study
  Country: FR (occurrence: FR)
  Receive Date: 20250527
  Receipt Date: 20250527
  Transmission Date: 20250717
  Serious: Yes (Congenital Anomaly)
  Sender: ABBVIE
  Company Number: FR-ABBVIE-6301962

PATIENT

DRUGS (3)
  1. LOPINAVIR\RITONAVIR [Suspect]
     Active Substance: LOPINAVIR\RITONAVIR
     Indication: Maternal exposure timing unspecified
     Route: 064
  2. TENOFOVIR [Suspect]
     Active Substance: TENOFOVIR
     Indication: Maternal exposure timing unspecified
     Route: 064
  3. EMTRICITABINE [Suspect]
     Active Substance: EMTRICITABINE
     Indication: Maternal exposure timing unspecified
     Route: 064

REACTIONS (7)
  - Duodenal stenosis [Unknown]
  - Duodenal atresia [Unknown]
  - Foetal exposure during pregnancy [Unknown]
  - Polydactyly [Unknown]
  - Annular pancreas [Unknown]
  - Heterotaxia [Unknown]
  - Congenital anomaly [Unknown]
